FAERS Safety Report 21012853 (Version 1)
Quarter: 2022Q2

REPORT INFORMATION
  Report Type: Spontaneous
  Country: US (occurrence: US)
  Receive Date: 20220627
  Receipt Date: 20220627
  Transmission Date: 20220720
  Serious: No
  Sender: FDA-Public Use
  Company Number: US-SA-SAC20220616001431

PATIENT
  Sex: Male

DRUGS (1)
  1. DUPIXENT [Suspect]
     Active Substance: DUPILUMAB
     Indication: Dermatitis infected
     Dosage: 200 MG, QOW
     Route: 058
     Dates: start: 202203

REACTIONS (2)
  - Eye discharge [Unknown]
  - Product use in unapproved indication [Unknown]
